FAERS Safety Report 23911120 (Version 1)
Quarter: 2024Q2

REPORT INFORMATION
  Report Type: Spontaneous
  Country: US (occurrence: US)
  Receive Date: 20240528
  Receipt Date: 20240528
  Transmission Date: 20240716
  Serious: No
  Sender: FDA-Public Use
  Company Number: US-Calliditas-2024CAL00799

PATIENT
  Age: 43 Year
  Sex: Male
  Weight: 62.6 kg

DRUGS (1)
  1. TARPEYO [Suspect]
     Active Substance: BUDESONIDE
     Indication: IgA nephropathy
     Route: 048
     Dates: start: 20240504

REACTIONS (4)
  - Hunger [Unknown]
  - Thirst [Unknown]
  - Dry mouth [Unknown]
  - Blood pressure fluctuation [Unknown]
